FAERS Safety Report 5703935-2 (Version None)
Quarter: 2008Q2

REPORT INFORMATION
  Report Type: 
  Country: None (occurrence: None)
  Receive Date: 20080409
  Receipt Date: 20080325
  Transmission Date: 20081010
  Serious: Yes (Other)
  Sender: FDA-Public Use
  Company Number: 2008S1004867

PATIENT
  Age: 81 Year
  Sex: Female

DRUGS (5)
  1. DOXAZOSIN  (DOXAZOSIN) [Suspect]
     Indication: HYPERTENSION
     Dosage: 1 MG; ORAL
     Route: 048
     Dates: start: 20080208, end: 20080220
  2. ALLOPURINOL [Concomitant]
  3. GAMOLENIC ACID [Concomitant]
  4. SIMVASTATIN [Concomitant]
  5. LEVOTHYROXINE SODIUM [Concomitant]

REACTIONS (3)
  - DRUG INTOLERANCE [None]
  - DYSPNOEA [None]
  - NAUSEA [None]
